FAERS Safety Report 5504885-7 (Version None)
Quarter: 2007Q4

REPORT INFORMATION
  Report Type: 
  Country: None (occurrence: None)
  Receive Date: 20071031
  Receipt Date: 20071018
  Transmission Date: 20080405
  Serious: Yes (Other)
  Sender: FDA-Public Use
  Company Number: 019866

PATIENT
  Age: 30 Year
  Sex: Female

DRUGS (7)
  1. CLARAVIS [Suspect]
     Indication: ACNE
     Dosage: SEE IMAGE
     Dates: start: 20070515, end: 20070612
  2. CLARAVIS [Suspect]
     Indication: ACNE
     Dosage: SEE IMAGE
     Dates: start: 20070613, end: 20070715
  3. CLARAVIS [Suspect]
     Indication: ACNE
     Dosage: SEE IMAGE
     Dates: start: 20070716, end: 20070816
  4. CLARAVIS [Suspect]
     Indication: ACNE
     Dosage: SEE IMAGE
     Dates: start: 20070716, end: 20070816
  5. CLARAVIS [Suspect]
     Indication: ACNE
     Dosage: SEE IMAGE
     Dates: start: 20070817, end: 20070916
  6. CLARAVIS [Suspect]
     Indication: ACNE
     Dosage: SEE IMAGE
     Dates: start: 20070917, end: 20071001
  7. CLARAVIS [Suspect]
     Indication: ACNE
     Dosage: SEE IMAGE
     Dates: start: 20070917, end: 20071001

REACTIONS (2)
  - BLOOD TRIGLYCERIDES INCREASED [None]
  - OBESITY [None]
